FAERS Safety Report 10060765 (Version 2)
Quarter: 2014Q2

REPORT INFORMATION
  Report Type: Spontaneous
  Country: BR (occurrence: BR)
  Receive Date: 20140404
  Receipt Date: 20140404
  Transmission Date: 20141212
  Serious: Yes (Other)
  Sender: FDA-Public Use
  Company Number: ALCN2014BR001715

PATIENT
  Age: 79 Year
  Sex: Female
  Weight: 54 kg

DRUGS (5)
  1. DUOTRAV [BAC] [Suspect]
     Indication: GLAUCOMA
     Dosage: 1 GTT, BID
     Route: 047
     Dates: start: 201311, end: 201402
  2. LUMIGAN [Concomitant]
     Dosage: 1 DF, UNK
     Route: 047
  3. MICARDIS [Concomitant]
     Indication: HYPERTENSION
     Dosage: 1 DF, UNK
     Route: 048
     Dates: start: 2006
  4. ATENOLOL [Concomitant]
     Indication: HYPERTENSION
     Dosage: 1 DF, UNK
     Route: 048
     Dates: start: 1993
  5. OMEPRAZOLE [Concomitant]
     Dosage: 1 DF, UNK
     Dates: start: 2008

REACTIONS (6)
  - Retinal artery occlusion [Recovered/Resolved]
  - Asthenia [Recovered/Resolved]
  - Eye allergy [Recovered/Resolved]
  - Skin discolouration [Recovered/Resolved]
  - Ocular hyperaemia [Recovered/Resolved]
  - Hypersensitivity [Recovered/Resolved]
